FAERS Safety Report 19361909 (Version 1)
Quarter: 2021Q2

REPORT INFORMATION
  Report Type: Spontaneous
  Country: US (occurrence: US)
  Receive Date: 20210601
  Receipt Date: 20210601
  Transmission Date: 20210717
  Serious: No
  Sender: FDA-Public Use
  Company Number: US-ASTRAZENECA-2021A437460

PATIENT
  Age: 23338 Day
  Sex: Male

DRUGS (3)
  1. FASENRA [Suspect]
     Active Substance: BENRALIZUMAB
     Indication: ASTHMA
     Dosage: 30MG EVERY 4 WEEKS FOR FIRST 3 DOSES AND THEN EVERY 8 WEEKS
     Route: 058
  2. FASENRA [Suspect]
     Active Substance: BENRALIZUMAB
     Indication: ASTHMA
     Route: 058
     Dates: start: 20210112
  3. COVID PFIZER SHOT [Concomitant]
     Route: 065

REACTIONS (3)
  - Device malfunction [Unknown]
  - Incorrect dose administered by product [Not Recovered/Not Resolved]
  - Injection site pain [Not Recovered/Not Resolved]

NARRATIVE: CASE EVENT DATE: 20210512
